FAERS Safety Report 25987127 (Version 1)
Quarter: 2025Q4

REPORT INFORMATION
  Report Type: Other
  Country: CN (occurrence: CN)
  Receive Date: 20251103
  Receipt Date: 20251103
  Transmission Date: 20260118
  Serious: Yes (Other)
  Sender: ANI
  Company Number: CN-ANIPHARMA-031024

PATIENT
  Age: 25 Year
  Sex: Male

DRUGS (1)
  1. CLOBETASOL [Suspect]
     Active Substance: CLOBETASOL
     Indication: Psoriasis
     Dosage: HERBAL CREAM

REACTIONS (2)
  - Drug abuse [Unknown]
  - Cushing^s syndrome [Unknown]
